FAERS Safety Report 23404830 (Version 2)
Quarter: 2024Q1

REPORT INFORMATION
  Report Type: Report from Study
  Country: IT (occurrence: IT)
  Receive Date: 20240116
  Receipt Date: 20240124
  Transmission Date: 20240410
  Serious: Yes (Hospitalization)
  Sender: FDA-Public Use
  Company Number: None

PATIENT
  Age: 87 Year
  Sex: Male

DRUGS (7)
  1. OMEPRAZOLE [Suspect]
     Active Substance: OMEPRAZOLE
     Indication: Product used for unknown indication
     Dosage: 1 DOSAGE FORM, QD (28 CAPSULES GASTRO 20 MG ORALLY 1 GASTRO-RESISTANT CAPSULE AT 08:00)
     Route: 048
  2. NALOXONE HYDROCHLORIDE\OXYCODONE HYDROCHLORIDE [Interacting]
     Active Substance: NALOXONE HYDROCHLORIDE\OXYCODONE HYDROCHLORIDE
     Indication: Product used for unknown indication
     Dosage: 1 DF, BID (28 TAB 5MG PLUS 2.5MG PROLONGED RELEASE 1 TABLET PROLONGED RELEASE AT 08:00 TO 20:00)
     Route: 048
  3. TAMSULOSIN [Suspect]
     Active Substance: TAMSULOSIN
     Indication: Product used for unknown indication
     Dosage: 1 DOSAGE FORM (20 CAPSULE 0.4 MG RELEASE MODIFIED ORAL 1 HARD CAPSULE RELEASE MODIFIED AT 10.00 PM)
     Route: 048
  4. BROTIZOLAM [Interacting]
     Active Substance: BROTIZOLAM
     Indication: Product used for unknown indication
     Dosage: 1 DOSAGE FORM, QD (30 TAB 0.25 MG ORAL VIA 1 TABLET AT 10.00 PM)
     Route: 048
  5. LEVOTHYROXINE SODIUM [Suspect]
     Active Substance: LEVOTHYROXINE SODIUM
     Indication: Product used for unknown indication
     Dosage: 1 DOSAGE FORM, QD (50 TAB 125 MCG ORALLY 1 TABLETS AT 08:00)
     Route: 048
  6. HYDROCHLOROTHIAZIDE\LOSARTAN POTASSIUM [Suspect]
     Active Substance: HYDROCHLOROTHIAZIDE\LOSARTAN POTASSIUM
     Indication: Product used for unknown indication
     Dosage: 1 DOSAGE FORM, QD (14 COATED TAB 50 PLUS 12.5 MG FOR VIA ORAL 1 COATED TABLET AT 08:00)
     Route: 048
  7. DUTASTERIDE [Concomitant]
     Active Substance: DUTASTERIDE
     Route: 048

REACTIONS (5)
  - Pneumothorax [Unknown]
  - Hypokalaemia [Unknown]
  - Dyspnoea [Unknown]
  - Oliguria [Unknown]
  - Drug interaction [Unknown]

NARRATIVE: CASE EVENT DATE: 20231220
